FAERS Safety Report 4382713-3 (Version None)
Quarter: 2004Q2

REPORT INFORMATION
  Report Type: 
  Country: None (occurrence: None)
  Receive Date: 20040614
  Receipt Date: 20040419
  Transmission Date: 20050107
  Serious: Yes (Hospitalization)
  Sender: FDA-Public Use
  Company Number: S04-USA-02242-01

PATIENT
  Age: 60 Year
  Sex: Female

DRUGS (2)
  1. LEXAPRO [Suspect]
     Indication: BIPOLAR DISORDER
     Dates: start: 20031001, end: 20040418
  2. LITHIUM [Concomitant]

REACTIONS (1)
  - DEPERSONALISATION [None]
